FAERS Safety Report 10012725 (Version 1)
Quarter: 2014Q1

REPORT INFORMATION
  Report Type: Spontaneous
  Country: US (occurrence: US)
  Receive Date: 20140314
  Receipt Date: 20140314
  Transmission Date: 20141002
  Serious: Yes (Hospitalization, Other)
  Sender: FDA-Public Use
  Company Number: US-ASTRAZENECA-2014SE16502

PATIENT
  Age: 65 Year
  Sex: Male
  Weight: 72.6 kg

DRUGS (16)
  1. NEXIUM [Suspect]
     Indication: GASTROOESOPHAGEAL REFLUX DISEASE
     Route: 048
     Dates: start: 2011, end: 20140206
  2. NEXIUM [Suspect]
     Indication: DYSPEPSIA
     Route: 048
     Dates: start: 2011, end: 20140206
  3. NEXIUM [Suspect]
     Indication: GASTROOESOPHAGEAL REFLUX DISEASE
     Route: 048
     Dates: start: 20140206
  4. NEXIUM [Suspect]
     Indication: DYSPEPSIA
     Route: 048
     Dates: start: 20140206
  5. LISINOPRIL [Suspect]
     Indication: BLOOD PRESSURE ABNORMAL
     Route: 048
  6. Z PACK [Suspect]
     Indication: NASOPHARYNGITIS
     Route: 065
     Dates: start: 2011
  7. Z PACK [Suspect]
     Indication: COUGH
     Route: 065
     Dates: start: 2011
  8. COUMADIN [Suspect]
     Indication: BLOOD DISORDER
     Route: 048
     Dates: start: 2011
  9. ENTERIC COATED BABY ASPIRIN [Concomitant]
     Indication: BLOOD DISORDER
     Route: 048
     Dates: start: 2011
  10. LIPITOR [Concomitant]
     Indication: BLOOD CHOLESTEROL ABNORMAL
     Route: 048
     Dates: start: 2006
  11. ZETIA [Concomitant]
     Indication: BLOOD CHOLESTEROL ABNORMAL
     Route: 048
     Dates: start: 2006
  12. HCTZ [Concomitant]
     Indication: BLOOD PRESSURE ABNORMAL
     Route: 048
  13. METOPROLOL TARTRATE [Concomitant]
     Indication: BLOOD PRESSURE ABNORMAL
     Route: 048
     Dates: start: 2011
  14. MIRALAX [Concomitant]
     Indication: CONSTIPATION
     Route: 065
  15. GAS X [Concomitant]
     Route: 065
  16. STOOL SOFTNER [Concomitant]
     Indication: CONSTIPATION
     Route: 065

REACTIONS (17)
  - International normalised ratio abnormal [Unknown]
  - Gastrointestinal haemorrhage [Unknown]
  - Gastritis [Unknown]
  - Large intestine polyp [Unknown]
  - Decreased appetite [Recovering/Resolving]
  - Weight decreased [Unknown]
  - Nasopharyngitis [Unknown]
  - Abdominal distension [Unknown]
  - Cough [Unknown]
  - Viral infection [Unknown]
  - Abdominal pain [Unknown]
  - Constipation [Recovered/Resolved]
  - Abdominal discomfort [Unknown]
  - Eructation [Unknown]
  - Off label use [Unknown]
  - Drug dose omission [Unknown]
  - Drug interaction [Unknown]
